FAERS Safety Report 6947462-3 (Version None)
Quarter: 2010Q3

REPORT INFORMATION
  Report Type: 
  Country: None (occurrence: None)
  Receive Date: 20100827
  Receipt Date: 20090914
  Transmission Date: 20110219
  Serious: No
  Sender: FDA-Public Use
  Company Number: US-ABBOTT-09P-163-0597535-00

PATIENT
  Sex: Male

DRUGS (5)
  1. NIASPAN [Suspect]
     Indication: HIGH DENSITY LIPOPROTEIN DECREASED
     Dates: start: 20090910
  2. GLYBURIDE [Concomitant]
     Indication: GLUCOSE TOLERANCE IMPAIRED
     Dosage: UNKNOWN
  3. COREG [Concomitant]
     Indication: CORONARY ARTERY BYPASS
     Dosage: UNKNOWN
     Dates: start: 20050101
  4. PACERONE [Concomitant]
     Indication: ATRIAL FIBRILLATION
     Dates: start: 20090401
  5. FUROSEMIDE [Concomitant]
     Indication: OEDEMA PERIPHERAL

REACTIONS (2)
  - ABDOMINAL DISTENSION [None]
  - WEIGHT INCREASED [None]
